FAERS Safety Report 8883744 (Version 1)
Quarter: 2012Q4

REPORT INFORMATION
  Report Type: 
  Country: US (occurrence: US)
  Receive Date: 20121102
  Receipt Date: 20121102
  Transmission Date: 20130627
  Serious: No
  Sender: FDA-Public Use
  Company Number: US-ASTRAZENECA-2011SE73946

PATIENT
  Age: 36 Year
  Sex: Male
  Weight: 104.3 kg

DRUGS (2)
  1. CRESTOR [Suspect]
     Indication: BLOOD CHOLESTEROL INCREASED
     Route: 048
     Dates: start: 201105
  2. MYCARDIS [Concomitant]

REACTIONS (2)
  - Back pain [Not Recovered/Not Resolved]
  - Muscle spasms [Recovering/Resolving]
